FAERS Safety Report 9854243 (Version 7)
Quarter: 2014Q4

REPORT INFORMATION
  Report Type: Spontaneous
  Country: CA (occurrence: CA)
  Receive Date: 20140130
  Receipt Date: 20141028
  Transmission Date: 20150529
  Serious: Yes (Hospitalization, Other)
  Sender: FDA-Public Use
  Company Number: CA-ROCHE-1339728

PATIENT
  Age: 17 Year
  Sex: Female

DRUGS (10)
  1. XOLAIR [Suspect]
     Active Substance: OMALIZUMAB
     Indication: ASTHMA
     Route: 058
     Dates: start: 20121121
  2. XOLAIR [Suspect]
     Active Substance: OMALIZUMAB
     Route: 058
     Dates: start: 20130312
  3. ADVAIR HFA [Concomitant]
     Active Substance: FLUTICASONE PROPIONATE\SALMETEROL XINAFOATE
  4. SINGULAIR [Concomitant]
     Active Substance: MONTELUKAST SODIUM
  5. XOLAIR [Suspect]
     Active Substance: OMALIZUMAB
     Route: 058
     Dates: start: 20140212
  6. QVAR [Concomitant]
     Active Substance: BECLOMETHASONE DIPROPIONATE
  7. XOLAIR [Suspect]
     Active Substance: OMALIZUMAB
     Route: 058
     Dates: start: 20130131
  8. XOLAIR [Suspect]
     Active Substance: OMALIZUMAB
     Route: 058
     Dates: start: 20130522
  9. XOLAIR [Suspect]
     Active Substance: OMALIZUMAB
     Route: 058
     Dates: start: 20130610
  10. XOLAIR [Suspect]
     Active Substance: OMALIZUMAB
     Route: 058
     Dates: end: 20140130

REACTIONS (17)
  - Urticaria [Recovered/Resolved]
  - Fatigue [Unknown]
  - Disturbance in attention [Unknown]
  - Confusional state [Unknown]
  - Sinusitis [Unknown]
  - Nasopharyngitis [Unknown]
  - Lymphadenopathy [Unknown]
  - Asthma [Unknown]
  - Body temperature decreased [Recovering/Resolving]
  - Respiratory tract congestion [Unknown]
  - Influenza [Unknown]
  - Obstructive airways disorder [Unknown]
  - Malaise [Unknown]
  - Lymphadenitis [Unknown]
  - Heart rate increased [Unknown]
  - Viral infection [Unknown]
  - Cough [Unknown]

NARRATIVE: CASE EVENT DATE: 20121121
